FAERS Safety Report 11494188 (Version 1)
Quarter: 2015Q3

REPORT INFORMATION
  Report Type: Spontaneous
  Country: US (occurrence: US)
  Receive Date: 20150911
  Receipt Date: 20150911
  Transmission Date: 20151125
  Serious: No
  Sender: FDA-Public Use
  Company Number: US-ROCHE-1011408

PATIENT
  Sex: Female

DRUGS (7)
  1. PEGASYS [Suspect]
     Active Substance: PEGINTERFERON ALFA-2A
     Indication: CHRONIC HEPATITIS C
     Route: 065
     Dates: start: 20111005
  2. RIBASPHERE [Suspect]
     Active Substance: RIBAVIRIN
     Indication: CHRONIC HEPATITIS C
     Route: 065
     Dates: start: 20111005
  3. KLONOPIN [Concomitant]
     Active Substance: CLONAZEPAM
  4. ASPIRIN. [Concomitant]
     Active Substance: ASPIRIN
  5. BUPROPION. [Concomitant]
     Active Substance: BUPROPION
  6. ESTRADIOL. [Concomitant]
     Active Substance: ESTRADIOL
  7. TRAZODONE [Concomitant]
     Active Substance: TRAZODONE HYDROCHLORIDE

REACTIONS (1)
  - Dizziness [Unknown]
